FAERS Safety Report 8344199-3 (Version None)
Quarter: 2012Q2

REPORT INFORMATION
  Report Type: 
  Country: None (occurrence: None)
  Receive Date: 20120508
  Receipt Date: 20120425
  Transmission Date: 20120825
  Serious: Yes (Other)
  Sender: FDA-Public Use
  Company Number: PHHY2012CA036495

PATIENT
  Sex: Male

DRUGS (3)
  1. ATENOLOL [Concomitant]
  2. CHOLESTEROL REDUCERS [Concomitant]
  3. RASILEZ [Suspect]
     Dates: start: 20110201

REACTIONS (8)
  - BLOOD CHOLESTEROL INCREASED [None]
  - RENAL PAIN [None]
  - HEPATIC CYST [None]
  - RENAL CYST [None]
  - CYST [None]
  - LYMPHOCELE [None]
  - HYPERTENSION [None]
  - ABDOMINAL DISCOMFORT [None]
